FAERS Safety Report 7234293-2 (Version None)
Quarter: 2011Q1

REPORT INFORMATION
  Report Type: 
  Country: None (occurrence: None)
  Receive Date: 20110119
  Receipt Date: 20110105
  Transmission Date: 20110831
  Serious: Yes (Hospitalization)
  Sender: FDA-Public Use
  Company Number: US-CELGENEUS-163-21880-10112659

PATIENT
  Sex: Male
  Weight: 61.7 kg

DRUGS (7)
  1. DEXAMETHASONE [Suspect]
     Indication: AMYLOIDOSIS
     Route: 048
     Dates: start: 20100417, end: 20100715
  2. LASIX [Concomitant]
     Route: 065
  3. REVLIMID [Suspect]
     Indication: AMYLOIDOSIS
     Route: 048
     Dates: start: 20100417
  4. ASPIRIN [Concomitant]
     Route: 065
  5. NEURONTIN [Concomitant]
     Route: 065
  6. REVLIMID [Suspect]
     Route: 048
     Dates: start: 20100620, end: 20100711
  7. MELPHALAN [Suspect]
     Indication: AMYLOIDOSIS
     Route: 048
     Dates: start: 20100417, end: 20100715

REACTIONS (2)
  - RENAL FAILURE ACUTE [None]
  - HYPOVOLAEMIA [None]
